FAERS Safety Report 4366715-9 (Version None)
Quarter: 2004Q2

REPORT INFORMATION
  Report Type: 
  Country: None (occurrence: None)
  Receive Date: 20040527
  Receipt Date: 20040520
  Transmission Date: 20050107
  Serious: Yes (Hospitalization)
  Sender: FDA-Public Use
  Company Number: PR-MERCK-0405USA01705

PATIENT

DRUGS (1)
  1. CRIXIVAN [Suspect]
     Route: 048

REACTIONS (1)
  - RENAL FAILURE [None]
